FAERS Safety Report 7414494-0 (Version None)
Quarter: 2011Q2

REPORT INFORMATION
  Report Type: 
  Country: None (occurrence: None)
  Receive Date: 20110414
  Receipt Date: 20110406
  Transmission Date: 20111010
  Serious: Yes (Hospitalization)
  Sender: FDA-Public Use
  Company Number: FR-AMGEN-FRASP2011015845

PATIENT
  Age: 75 Year
  Sex: Male

DRUGS (2)
  1. ARANESP [Suspect]
     Indication: RENAL FAILURE CHRONIC
     Dosage: 300 A?G, Q2WK
     Dates: start: 20070601
  2. XAGRID [Suspect]
     Dosage: 0.5 MG, UNK
     Route: 048
     Dates: start: 20050606

REACTIONS (2)
  - METASTASES TO PLEURA [None]
  - BRONCHIOLOALVEOLAR CARCINOMA [None]
